FAERS Safety Report 10010661 (Version 2)
Quarter: 2014Q1

REPORT INFORMATION
  Report Type: Spontaneous
  Country: US (occurrence: US)
  Receive Date: 20140314
  Receipt Date: 20140314
  Transmission Date: 20141002
  Serious: No
  Sender: FDA-Public Use
  Company Number: US-DRREDDYS-USA/USA/13/0028190

PATIENT
  Age: 76 Year
  Sex: Female
  Weight: 54.48 kg

DRUGS (3)
  1. CETIRIZINE 10 MG [Suspect]
     Indication: RHINORRHOEA
     Dosage: 10 MG DAILY AT NIGHT
     Route: 048
     Dates: end: 20130221
  2. CETIRIZINE 10 MG [Suspect]
     Indication: LACRIMATION INCREASED
  3. OMEPRAZOLE DELAYED RELEASE CAPSULES 20 MG [Concomitant]
     Indication: PRODUCT USED FOR UNKNOWN INDICATION
     Route: 065

REACTIONS (1)
  - Dry mouth [Recovered/Resolved]
